FAERS Safety Report 20728461 (Version 1)
Quarter: 2022Q2

REPORT INFORMATION
  Report Type: Spontaneous
  Country: US (occurrence: US)
  Receive Date: 20220420
  Receipt Date: 20220420
  Transmission Date: 20220721
  Serious: Yes (Death, Hospitalization, Other)
  Sender: FDA-Public Use
  Company Number: US-GYP-001052

PATIENT
  Age: 60 Year
  Sex: Male

DRUGS (11)
  1. PREDNISONE [Suspect]
     Active Substance: PREDNISONE
     Indication: Aplastic anaemia
     Route: 065
     Dates: start: 202105
  2. CYCLOSPORINE [Suspect]
     Active Substance: CYCLOSPORINE
     Indication: Aplastic anaemia
     Route: 048
     Dates: start: 202105, end: 2021
  3. ELTROMBOPAG [Suspect]
     Active Substance: ELTROMBOPAG
     Indication: Aplastic anaemia
     Route: 065
     Dates: start: 202105
  4. CEFEPIME [Concomitant]
     Active Substance: CEFEPIME HYDROCHLORIDE
     Indication: Infection
     Route: 065
     Dates: start: 202105
  5. VANCOMYCIN [Suspect]
     Active Substance: VANCOMYCIN
     Indication: Infection
     Route: 065
     Dates: start: 202105
  6. FLUCONAZOLE [Concomitant]
     Active Substance: FLUCONAZOLE
     Indication: Infection
     Route: 065
     Dates: start: 202105
  7. AZITHROMYCIN [Concomitant]
     Active Substance: AZITHROMYCIN
     Indication: Infection
     Route: 065
     Dates: start: 202105
  8. DAPTOMYCIN [Suspect]
     Active Substance: DAPTOMYCIN
     Indication: Infection
     Route: 065
     Dates: start: 202105
  9. MICAFUNGIN [Suspect]
     Active Substance: MICAFUNGIN
     Indication: Mycoplasma test positive
     Route: 065
     Dates: start: 202105
  10. CEFTAROLINE [Suspect]
     Active Substance: CEFTAROLINE
     Indication: Mycoplasma test positive
     Route: 065
     Dates: start: 202105
  11. TIGECYCLINE [Suspect]
     Active Substance: TIGECYCLINE
     Indication: Mycoplasma test positive
     Route: 065
     Dates: start: 202105

REACTIONS (7)
  - Pneumonia [Unknown]
  - Therapeutic product effect incomplete [Unknown]
  - Diarrhoea [Unknown]
  - Clostridial infection [Unknown]
  - Hypotension [Unknown]
  - Cardiac arrest [Fatal]
  - Product use in unapproved indication [Unknown]

NARRATIVE: CASE EVENT DATE: 20210101
